FAERS Safety Report 25010420 (Version 2)
Quarter: 2025Q1

REPORT INFORMATION
  Report Type: Spontaneous
  Country: GB (occurrence: GB)
  Receive Date: 20250225
  Receipt Date: 20250311
  Transmission Date: 20250408
  Serious: Yes (Life-Threatening, Hospitalization, Other)
  Sender: PFIZER
  Company Number: GB-PFIZER INC-PV202500021657

PATIENT
  Age: 41 Year
  Sex: Female

DRUGS (2)
  1. MEROPENEM [Suspect]
     Active Substance: MEROPENEM
     Indication: Intracranial infection
     Dosage: 500 MG, 4X/DAY, 6 HOURLY
     Route: 042
  2. MEROPENEM [Suspect]
     Active Substance: MEROPENEM
     Dosage: 2 G, 3X/DAY, 8 HOURLY
     Route: 042

REACTIONS (2)
  - Toxic encephalopathy [Recovered/Resolved]
  - Off label use [Unknown]
